FAERS Safety Report 19013148 (Version 2)
Quarter: 2021Q2

REPORT INFORMATION
  Report Type: Spontaneous
  Country: US (occurrence: US)
  Receive Date: 20210316
  Receipt Date: 20210406
  Transmission Date: 20210717
  Serious: No
  Sender: FDA-Public Use
  Company Number: US-GLAXOSMITHKLINE-US2021AMR061683

PATIENT
  Sex: Female

DRUGS (2)
  1. SUMATRIPTAN (SUMATRIPTAN SUCCINATE) [Suspect]
     Active Substance: SUMATRIPTAN SUCCINATE
     Indication: PRODUCT USED FOR UNKNOWN INDICATION
     Dosage: UNK, 6MG 2X0.5ML KIT
  2. SUMATRIPTAN (SUMATRIPTAN SUCCINATE) [Suspect]
     Active Substance: SUMATRIPTAN SUCCINATE

REACTIONS (3)
  - Exposure via skin contact [Unknown]
  - Accidental exposure to product [Unknown]
  - Product complaint [Unknown]
